FAERS Safety Report 7970970-3 (Version None)
Quarter: 2011Q4

REPORT INFORMATION
  Report Type: 
  Country: None (occurrence: None)
  Receive Date: 20111212
  Receipt Date: 20111205
  Transmission Date: 20120403
  Serious: Yes (Other)
  Sender: FDA-Public Use
  Company Number: PHHY2011GB106031

PATIENT
  Age: 38 Year
  Sex: Female
  Weight: 55 kg

DRUGS (8)
  1. DEXAMETHASONE [Concomitant]
     Indication: MALAISE
     Dosage: 8 MG, TID
     Dates: start: 20111019, end: 20111021
  2. HYDROCORTISONE [Concomitant]
     Dosage: 100 MG, UNK
     Dates: start: 20111108, end: 20111108
  3. CARBOPLATIN [Suspect]
     Indication: OVARIAN CANCER
     Dosage: 55 ML, UNK
     Route: 042
     Dates: start: 20111108, end: 20111108
  4. CHLORPHENIRAMINE MALEATE [Concomitant]
     Dosage: 10 MG, UNK
     Dates: start: 20111108, end: 20111108
  5. DOMPERIDONE [Concomitant]
     Indication: NAUSEA
     Dosage: 20 MG, TID
     Route: 048
     Dates: start: 20111018, end: 20111023
  6. LACTULOSE [Concomitant]
     Indication: CONSTIPATION
     Dosage: 10 ML, BID
     Route: 048
     Dates: start: 20111018
  7. PACLITAXEL [Concomitant]
     Dates: start: 20111108, end: 20111108
  8. DEXAMETHASONE [Concomitant]
     Indication: PREMEDICATION
     Dosage: 20 MG, UNK
     Route: 048
     Dates: start: 20111107, end: 20111108

REACTIONS (4)
  - PRURITUS [None]
  - NAUSEA [None]
  - ERYTHEMA [None]
  - TACHYCARDIA [None]
